FAERS Safety Report 7964139-6 (Version None)
Quarter: 2011Q4

REPORT INFORMATION
  Report Type: 
  Country: None (occurrence: None)
  Receive Date: 20111205
  Receipt Date: 20111116
  Transmission Date: 20120403
  Serious: Yes (Hospitalization, Other)
  Sender: FDA-Public Use
  Company Number: 2011AP002729

PATIENT
  Age: 46 Year
  Sex: Male

DRUGS (10)
  1. TEMAZEPAM [Concomitant]
  2. CARBASALATE CALCIUM (CARBASALATE CALCIUM) [Concomitant]
  3. DIPYRIDAMOLE [Concomitant]
  4. CLOZAPINE [Suspect]
     Indication: SCHIZOPHRENIA, PARANOID TYPE
     Dosage: 325 MG; QD 250 MG;QD 500 MG;QD 300 MG;QD
  5. OXAZEPAM [Concomitant]
  6. RISPERIDONE [Concomitant]
  7. QUETIAPINE FUMARATE [Concomitant]
  8. AMLODIPINE [Suspect]
     Indication: HYPERTENSION
  9. METOPROLOL TARTRATE [Concomitant]
  10. ENALAPRIL MALEATE [Suspect]
     Indication: HYPERTENSION

REACTIONS (10)
  - OEDEMA PERIPHERAL [None]
  - EXTRAPYRAMIDAL DISORDER [None]
  - PERIORBITAL OEDEMA [None]
  - ANGIOEDEMA [None]
  - HEMIPARESIS [None]
  - HYPERTENSION [None]
  - REFUSAL OF TREATMENT BY PATIENT [None]
  - DRUG INEFFECTIVE [None]
  - TREATMENT NONCOMPLIANCE [None]
  - HYPERTENSIVE CRISIS [None]
